FAERS Safety Report 10447826 (Version 2)
Quarter: 2014Q3

REPORT INFORMATION
  Report Type: Report from Study
  Country: BR (occurrence: BR)
  Receive Date: 20140911
  Receipt Date: 20140922
  Transmission Date: 20150326
  Serious: Yes (Life-Threatening, Other)
  Sender: FDA-Public Use
  Company Number: PHHY2014BR114961

PATIENT
  Age: 40 Year
  Sex: Female
  Weight: 46 kg

DRUGS (7)
  1. TEGRETOL [Suspect]
     Active Substance: CARBAMAZEPINE
     Dosage: UNK UKN, TID (400 MG)
     Route: 048
     Dates: end: 20140904
  2. DIAZEPAM. [Suspect]
     Active Substance: DIAZEPAM
     Indication: SLEEP DISORDER
     Dosage: 10 MG, QD
     Route: 048
     Dates: start: 2008
  3. TEGRETOL [Suspect]
     Active Substance: CARBAMAZEPINE
     Dosage: UNK UKN, BID, (200 MG) FOR 5 DAYS
     Route: 048
     Dates: start: 200303
  4. DIAZEPAM. [Suspect]
     Active Substance: DIAZEPAM
     Dosage: 10 MG, UNK
     Route: 048
     Dates: start: 2008
  5. TEGRETOL [Suspect]
     Active Substance: CARBAMAZEPINE
     Indication: CONVULSION
     Dosage: 400 MG, UNK
     Route: 048
  6. DIAZEPAM. [Suspect]
     Active Substance: DIAZEPAM
     Dosage: UNK UKN, UNK
     Route: 048
     Dates: start: 20140829, end: 20140830
  7. HALDOL [Concomitant]
     Active Substance: HALOPERIDOL
     Indication: SCHIZOPHRENIA
     Dosage: UNK
     Dates: start: 2008

REACTIONS (4)
  - Schizophrenia [Recovered/Resolved]
  - Convulsion [Not Recovered/Not Resolved]
  - Coma [Recovered/Resolved]
  - Syncope [Recovering/Resolving]

NARRATIVE: CASE EVENT DATE: 201303
